FAERS Safety Report 4302082-4 (Version None)
Quarter: 2004Q1

REPORT INFORMATION
  Report Type: 
  Country: None (occurrence: None)
  Receive Date: 20040220
  Receipt Date: 20040212
  Transmission Date: 20041129
  Serious: Yes (Hospitalization)
  Sender: FDA-Public Use
  Company Number: 2004199015NL

PATIENT
  Age: 75 Year
  Sex: Male

DRUGS (2)
  1. CAMPTOSAR [Suspect]
     Indication: COLON CANCER
     Dosage: 500 MG, EVERY 3 WEEKS, D 1, IV
     Route: 042
     Dates: start: 20030902, end: 20031007
  2. XELODA [Suspect]
     Indication: COLON CANCER
     Dosage: 1 G, BID, EVERY 3 WEEKS, D 1 4, ORAL
     Route: 048
     Dates: start: 20030902, end: 20031007

REACTIONS (2)
  - DIARRHOEA [None]
  - HYPOKALAEMIA [None]
